FAERS Safety Report 9833987 (Version 1)
Quarter: 2014Q1

REPORT INFORMATION
  Report Type: Spontaneous
  Country: PE (occurrence: PE)
  Receive Date: 20140122
  Receipt Date: 20140122
  Transmission Date: 20141002
  Serious: Yes (Congenital Anomaly)
  Sender: FDA-Public Use
  Company Number: PE-ROCHE-1336007

PATIENT
  Sex: Male

DRUGS (1)
  1. ACTEMRA [Suspect]
     Indication: PRODUCT USED FOR UNKNOWN INDICATION
     Route: 064
     Dates: start: 201206, end: 20130509

REACTIONS (3)
  - Foetal exposure during pregnancy [Unknown]
  - Cyanosis [Unknown]
  - Dyspnoea [Unknown]
